FAERS Safety Report 5783854-6 (Version None)
Quarter: 2008Q2

REPORT INFORMATION
  Report Type: 
  Country: None (occurrence: None)
  Receive Date: 20080605
  Receipt Date: 20080325
  Transmission Date: 20081010
  Serious: No
  Sender: FDA-Public Use
  Company Number: A0717307A

PATIENT
  Age: 51 Year
  Sex: Male

DRUGS (2)
  1. ALLI [Suspect]
     Dates: start: 20080313
  2. MULTI-VITAMIN [Concomitant]

REACTIONS (1)
  - CONSTIPATION [None]
